FAERS Safety Report 9893623 (Version 2)
Quarter: 2014Q1

REPORT INFORMATION
  Report Type: Report from Study
  Country: MX (occurrence: MX)
  Receive Date: 20140213
  Receipt Date: 20140213
  Transmission Date: 20141002
  Serious: Yes (Other)
  Sender: FDA-Public Use
  Company Number: PHHO2005MX19394

PATIENT
  Age: 21 Year
  Sex: Female

DRUGS (2)
  1. GLIVEC [Suspect]
     Indication: CHRONIC MYELOID LEUKAEMIA
     Dosage: 400 MG, UNK
     Route: 048
     Dates: start: 20050919, end: 20051209
  2. GLIVEC [Suspect]
     Dosage: 400 MG, UNK
     Dates: end: 2014

REACTIONS (2)
  - Amenorrhoea [Unknown]
  - Drug ineffective [Recovered/Resolved]
